FAERS Safety Report 18919807 (Version 1)
Quarter: 2021Q1

REPORT INFORMATION
  Report Type: Spontaneous
  Country: CA (occurrence: CA)
  Receive Date: 20210221
  Receipt Date: 20210221
  Transmission Date: 20210420
  Serious: Yes (Other)
  Sender: FDA-Public Use
  Company Number: CA-AUROBINDO-AUR-APL-2021-006912

PATIENT
  Age: 57 Year
  Sex: Female

DRUGS (2)
  1. OCALIVA [Suspect]
     Active Substance: OBETICHOLIC ACID
     Indication: PRIMARY BILIARY CHOLANGITIS
     Dosage: 5 MILLIGRAM, EVERY WEEK
     Route: 048
  2. PANTOPRAZOLE [Suspect]
     Active Substance: PANTOPRAZOLE
     Indication: PRODUCT USED FOR UNKNOWN INDICATION
     Dosage: UNK UNK, TWO TIMES A DAY
     Route: 065

REACTIONS (16)
  - Abdominal discomfort [Unknown]
  - Pyrexia [Unknown]
  - Fatigue [Unknown]
  - Blood bilirubin increased [Unknown]
  - Constipation [Unknown]
  - Arthralgia [Unknown]
  - Influenza [Unknown]
  - Pruritus [Unknown]
  - Liver injury [Unknown]
  - Dizziness [Unknown]
  - Oral pain [Unknown]
  - Faeces discoloured [Unknown]
  - Yellow skin [Unknown]
  - Abdominal pain [Unknown]
  - Diarrhoea [Unknown]
  - Oropharyngeal pain [Unknown]
